FAERS Safety Report 10969991 (Version 2)
Quarter: 2015Q1

REPORT INFORMATION
  Report Type: Spontaneous
  Country: US (occurrence: None)
  Receive Date: 20150226
  Receipt Date: 20150226
  Transmission Date: 20150721
  Serious: Yes (Hospitalization)
  Sender: FDA-Public Use
  Company Number: TPA2009A02170

PATIENT
  Age: 57 Year
  Sex: Male
  Weight: 79.38 kg

DRUGS (9)
  1. ULORIC [Suspect]
     Active Substance: FEBUXOSTAT
     Indication: GOUT
     Route: 048
     Dates: start: 200906
  2. ZESTRIL (LISINOPRIL) [Concomitant]
  3. NEXIUM [Concomitant]
     Active Substance: ESOMEPRAZOLE MAGNESIUM
  4. NORVASC [Concomitant]
     Active Substance: AMLODIPINE BESYLATE
  5. ASPIRIN. [Concomitant]
     Active Substance: ASPIRIN
  6. HYDROCHLOROTHIAZIDE. [Concomitant]
     Active Substance: HYDROCHLOROTHIAZIDE
  7. VALIUM [Concomitant]
     Active Substance: DIAZEPAM
  8. PREDNISONE. [Concomitant]
     Active Substance: PREDNISONE
  9. VITAMIN C [Concomitant]
     Active Substance: ASCORBIC ACID

REACTIONS (4)
  - Confusional state [None]
  - Transient ischaemic attack [None]
  - Hypoaesthesia [None]
  - Vision blurred [None]

NARRATIVE: CASE EVENT DATE: 20090712
